FAERS Safety Report 26053648 (Version 1)
Quarter: 2025Q4

REPORT INFORMATION
  Report Type: Spontaneous
  Country: US (occurrence: US)
  Receive Date: 20251117
  Receipt Date: 20251117
  Transmission Date: 20260117
  Serious: No
  Sender: SANOFI AVENTIS
  Company Number: US-SA-2025SA337243

PATIENT
  Age: 34 Year
  Sex: Female

DRUGS (2)
  1. DUPIXENT [Suspect]
     Active Substance: DUPILUMAB
     Indication: Idiopathic urticaria
     Dosage: 300 MG, QOW
     Route: 058
     Dates: start: 202507
  2. DERMABOND [Suspect]
     Active Substance: DEVICE

REACTIONS (3)
  - Drug hypersensitivity [Unknown]
  - Idiopathic urticaria [Unknown]
  - Condition aggravated [Unknown]

NARRATIVE: CASE EVENT DATE: 20250101
